FAERS Safety Report 15019583 (Version 1)
Quarter: 2018Q2

REPORT INFORMATION
  Report Type: Spontaneous
  Country: US (occurrence: US)
  Receive Date: 20180618
  Receipt Date: 20180618
  Transmission Date: 20180711
  Serious: No
  Sender: FDA-Public Use
  Company Number: US-BIOGEN-2018BI00594787

PATIENT
  Sex: Female

DRUGS (1)
  1. TECFIDERA [Suspect]
     Active Substance: DIMETHYL FUMARATE
     Indication: MULTIPLE SCLEROSIS
     Route: 065
     Dates: start: 20170414

REACTIONS (7)
  - Fatigue [Unknown]
  - Impaired driving ability [Unknown]
  - Mobility decreased [Unknown]
  - Depression [Unknown]
  - Fear of falling [Unknown]
  - Psychiatric symptom [Unknown]
  - Gait disturbance [Unknown]
